FAERS Safety Report 9575966 (Version 1)
Quarter: 2013Q4

REPORT INFORMATION
  Report Type: Spontaneous
  Country: US (occurrence: US)
  Receive Date: 20131001
  Receipt Date: 20131001
  Transmission Date: 20140711
  Serious: No
  Sender: FDA-Public Use
  Company Number: US-AMGEN-USASP2013000318

PATIENT
  Age: 34 Year
  Sex: Female

DRUGS (1)
  1. ENBREL [Suspect]
     Indication: PSORIASIS
     Dosage: 50 MG, BIWEEKLY
     Dates: start: 20121204, end: 201212

REACTIONS (3)
  - Night sweats [Recovered/Resolved]
  - Abdominal pain upper [Recovered/Resolved]
  - Sinusitis [Recovered/Resolved]
